FAERS Safety Report 6754630-2 (Version None)
Quarter: 2010Q2

REPORT INFORMATION
  Report Type: 
  Country: None (occurrence: None)
  Receive Date: 20100524
  Receipt Date: 20100318
  Transmission Date: 20101027
  Serious: No
  Sender: FDA-Public Use
  Company Number: 009175

PATIENT
  Sex: Female

DRUGS (1)
  1. CIMZIA [Suspect]
     Indication: CROHN'S DISEASE
     Dosage: (400 MG  /MONTH SUBCUTANEOUS)
     Route: 058
     Dates: start: 20090312

REACTIONS (1)
  - COLONIC OBSTRUCTION [None]
